FAERS Safety Report 6042985-6 (Version None)
Quarter: 2009Q1

REPORT INFORMATION
  Report Type: 
  Country: None (occurrence: None)
  Receive Date: 20090119
  Receipt Date: 20090105
  Transmission Date: 20090719
  Serious: Yes (Hospitalization)
  Sender: FDA-Public Use
  Company Number: GB-ROCHE-606220

PATIENT
  Sex: Female

DRUGS (13)
  1. CELLCEPT [Suspect]
     Indication: DRUG USE FOR UNKNOWN INDICATION
     Route: 065
  2. CELLCEPT [Suspect]
     Route: 065
  3. ARANESP [Suspect]
     Route: 058
     Dates: start: 20060601, end: 20070826
  4. ARANESP [Suspect]
     Route: 058
     Dates: start: 20081016, end: 20081109
  5. ARANESP [Suspect]
     Route: 058
     Dates: start: 20081110, end: 20081123
  6. ARANESP [Suspect]
     Route: 058
     Dates: start: 20081124, end: 20081201
  7. EPREX [Suspect]
     Route: 065
     Dates: start: 20080207, end: 20080313
  8. EPREX [Suspect]
     Route: 065
     Dates: start: 20080314, end: 20080917
  9. TACROLIMUS [Suspect]
     Indication: DRUG USE FOR UNKNOWN INDICATION
     Route: 065
  10. TACROLIMUS [Suspect]
     Route: 065
  11. TACROLIMUS [Suspect]
     Route: 065
  12. TACROLIMUS [Suspect]
     Route: 065
  13. TACROLIMUS [Suspect]
     Route: 065

REACTIONS (4)
  - APLASIA PURE RED CELL [None]
  - DRUG INEFFECTIVE [None]
  - DRUG SPECIFIC ANTIBODY ABSENT [None]
  - RENAL TRANSPLANT [None]
